FAERS Safety Report 18131749 (Version 2)
Quarter: 2020Q3

REPORT INFORMATION
  Report Type: Report from Study
  Country: None (occurrence: CA)
  Receive Date: 20200810
  Receipt Date: 20200813
  Transmission Date: 20201103
  Serious: Yes (Hospitalization)
  Sender: FDA-Public Use
  Company Number: CA-ABBVIE-20K-028-3516955-00

PATIENT
  Age: 97 Year
  Sex: Male

DRUGS (1)
  1. LUPRON DEPOT [Suspect]
     Active Substance: LEUPROLIDE ACETATE
     Indication: PROSTATE CANCER
     Route: 030
     Dates: start: 20190517

REACTIONS (10)
  - Urinary tract infection [Unknown]
  - Device issue [Unknown]
  - Disorientation [Unknown]
  - Fall [Unknown]
  - Urinary retention [Unknown]
  - Restlessness [Unknown]
  - Confusional state [Unknown]
  - Faeces discoloured [Unknown]
  - Blood sodium decreased [Unknown]
  - Anxiety [Unknown]

NARRATIVE: CASE EVENT DATE: 20200728
